FAERS Safety Report 13867981 (Version 1)
Quarter: 2017Q3

REPORT INFORMATION
  Report Type: Spontaneous
  Country: US (occurrence: None)
  Receive Date: 20170811
  Receipt Date: 20170811
  Transmission Date: 20171127
  Serious: Yes (Hospitalization)
  Sender: FDA-Public Use
  Company Number: None

PATIENT
  Age: 55 Year
  Sex: Female
  Weight: 81.65 kg

DRUGS (1)
  1. CARIMUNE NANOFILTERED [Suspect]
     Active Substance: HUMAN IMMUNOGLOBULIN G
     Indication: CHRONIC INFLAMMATORY DEMYELINATING POLYRADICULONEUROPATHY
     Dosage: DOSE - 50 GRAMS QD X 2
     Route: 042
     Dates: start: 20170720, end: 20170721

REACTIONS (1)
  - Renal failure [None]

NARRATIVE: CASE EVENT DATE: 20170727
